FAERS Safety Report 4662406-5 (Version None)
Quarter: 2005Q2

REPORT INFORMATION
  Report Type: 
  Country: None (occurrence: None)
  Receive Date: 20050516
  Receipt Date: 20050508
  Transmission Date: 20051028
  Serious: Yes (Other)
  Sender: FDA-Public Use
  Company Number: PT-MERCK-0505PRT00001

PATIENT
  Age: 11 Year
  Sex: Female
  Weight: 46 kg

DRUGS (1)
  1. SINGULAIR [Suspect]
     Indication: ASTHMA
     Route: 048
     Dates: start: 20000401, end: 20050506

REACTIONS (1)
  - HYPOTHERMIA [None]
